FAERS Safety Report 6204615-X (Version None)
Quarter: 2009Q2

REPORT INFORMATION
  Report Type: 
  Country: None (occurrence: None)
  Receive Date: 20090527
  Receipt Date: 20090515
  Transmission Date: 20091009
  Serious: Yes (Hospitalization)
  Sender: FDA-Public Use
  Company Number: CH-PFIZER INC-2009213597

PATIENT
  Age: 70 Year

DRUGS (6)
  1. VINCRISTINE SULFATE [Suspect]
     Indication: LEUKAEMIA
     Dosage: UNK
     Dates: start: 20090423
  2. VINCRISTINE SULFATE [Suspect]
     Indication: MYELODYSPLASTIC SYNDROME
  3. DOXORUBICIN HCL [Suspect]
     Indication: LEUKAEMIA
     Dosage: UNK
     Dates: start: 20090423
  4. DOXORUBICIN HCL [Suspect]
     Indication: MYELODYSPLASTIC SYNDROME
  5. PREDNISON [Suspect]
     Indication: LEUKAEMIA
     Dosage: 100 MG, UNK
     Route: 048
     Dates: start: 20090423
  6. PREDNISON [Suspect]
     Indication: MYELODYSPLASTIC SYNDROME

REACTIONS (1)
  - DIABETES MELLITUS [None]
